FAERS Safety Report 5052502-5 (Version None)
Quarter: 2006Q3

REPORT INFORMATION
  Report Type: 
  Country: None (occurrence: None)
  Receive Date: 20060717
  Receipt Date: 20050809
  Transmission Date: 20061208
  Serious: Yes (Death, Hospitalization, Other)
  Sender: FDA-Public Use
  Company Number: JP-AVENTIS-200512324JP

PATIENT
  Age: 76 Year
  Sex: Male

DRUGS (13)
  1. RILUTEK [Suspect]
     Indication: AMYOTROPHIC LATERAL SCLEROSIS
     Route: 048
     Dates: start: 20000207, end: 20011121
  2. RILUTEK [Suspect]
     Dosage: ROUTE: GASTROSTOMY TUBE
     Route: 050
     Dates: start: 20011122, end: 20020227
  3. PURSENNID [Concomitant]
     Indication: CONSTIPATION
     Route: 048
     Dates: start: 20000228, end: 20020103
  4. SENNOSIDE [Concomitant]
     Indication: CONSTIPATION
     Route: 048
     Dates: start: 20000228, end: 20020103
  5. CEROCRAL [Concomitant]
     Indication: CEREBRAL INFARCTION
     Route: 048
     Dates: start: 20000821, end: 20020227
  6. GASTER [Concomitant]
     Indication: GASTRIC ULCER
     Route: 048
     Dates: start: 20011030
  7. DEPAS [Concomitant]
     Indication: ANXIETY
     Route: 048
     Dates: start: 20020131, end: 20020228
  8. DEPROMEL [Concomitant]
     Indication: DEPRESSION
     Route: 048
     Dates: start: 20020208, end: 20020228
  9. NEOPHYLLIN [Concomitant]
     Indication: ASTHMA
     Route: 048
     Dates: start: 20020217, end: 20020228
  10. SAWACILLIN [Concomitant]
     Indication: PNEUMONIA
     Route: 048
     Dates: start: 20020217, end: 20020228
  11. MINOCYCLINE HCL [Concomitant]
     Indication: PNEUMONIA
     Route: 048
     Dates: start: 20020212, end: 20020228
  12. MUCOSOLVAN [Concomitant]
     Indication: PRODUCTIVE COUGH
     Route: 048
     Dates: start: 20020217, end: 20020228
  13. CLINDAMYCIN HCL [Concomitant]
     Indication: PNEUMONIA
     Route: 041
     Dates: start: 20011214, end: 20011221

REACTIONS (4)
  - AMYOTROPHIC LATERAL SCLEROSIS [None]
  - DISEASE PROGRESSION [None]
  - PNEUMONIA [None]
  - PNEUMONIA ASPIRATION [None]
